FAERS Safety Report 4295080-0 (Version None)
Quarter: 2004Q1

REPORT INFORMATION
  Report Type: 
  Country: None (occurrence: None)
  Receive Date: 20040212
  Receipt Date: 20040129
  Transmission Date: 20041129
  Serious: Yes (Other)
  Sender: FDA-Public Use
  Company Number: S04-USA-00088-01

PATIENT
  Age: 38 Year
  Sex: Female

DRUGS (2)
  1. LEXAPRO [Suspect]
  2. MORPHINE SULFATE [Concomitant]

REACTIONS (3)
  - ABDOMINAL DISTENSION [None]
  - ABDOMINAL PAIN [None]
  - MALIGNANT NEOPLASM PROGRESSION [None]
